FAERS Safety Report 9746074 (Version 1)
Quarter: 2013Q4

REPORT INFORMATION
  Report Type: Spontaneous
  Country: US (occurrence: US)
  Receive Date: 20131211
  Receipt Date: 20131211
  Transmission Date: 20140711
  Serious: No
  Sender: FDA-Public Use
  Company Number: US-GILEAD-2009-0024244

PATIENT
  Sex: Male

DRUGS (6)
  1. ATRIPLA [Suspect]
     Indication: HIV INFECTION
     Route: 048
     Dates: start: 200902
  2. COUMADIN [Concomitant]
  3. CAPTOPRIL [Concomitant]
  4. HCTZ [Concomitant]
  5. LORATADINE [Concomitant]
  6. NASONEX [Concomitant]

REACTIONS (1)
  - Neutropenia [Unknown]
